FAERS Safety Report 11225966 (Version 3)
Quarter: 2016Q2

REPORT INFORMATION
  Report Type: Spontaneous
  Country: JP (occurrence: JP)
  Receive Date: 20150629
  Receipt Date: 20160504
  Transmission Date: 20160815
  Serious: Yes (Death, Hospitalization, Disabling, Other)
  Sender: FDA-Public Use
  Company Number: JP-TAKEDA-2015MPI004217

PATIENT
  Age: 80 Year
  Sex: Male

DRUGS (5)
  1. WARFARIN [Concomitant]
     Active Substance: WARFARIN
     Indication: OEDEMA
     Dosage: 1 DF, QD
     Route: 048
     Dates: start: 20150617, end: 20150914
  2. VELCADE [Suspect]
     Active Substance: BORTEZOMIB
     Indication: PLASMA CELL MYELOMA
     Dosage: 1.3 MG/M2, QD
     Route: 058
     Dates: start: 20141222, end: 201505
  3. BIOFERMIN                          /01617201/ [Concomitant]
     Active Substance: BACILLUS SUBTILIS\LACTOBACILLUS ACIDOPHILUS\STREPTOCOCCUS FAECAIS
     Indication: GASTROINTESTINAL DISORDER
     Dosage: 3 DF, QD
     Route: 048
     Dates: start: 20150615, end: 20150914
  4. LENADEX [Suspect]
     Active Substance: DEXAMETHASONE ACETATE
     Indication: PLASMA CELL MYELOMA
     Dosage: 12 MG, QD
     Route: 048
     Dates: start: 20141222, end: 201505
  5. OXINORM                            /00045603/ [Concomitant]
     Active Substance: OXYCODONE HYDROCHLORIDE
     Indication: PAIN
     Dosage: 5 DF, UNK
     Route: 048
     Dates: start: 20150615, end: 20150914

REACTIONS (9)
  - Infection [Fatal]
  - Plasma cell myeloma [Fatal]
  - Gastrointestinal disorder [Not Recovered/Not Resolved]
  - Lung infiltration [Not Recovered/Not Resolved]
  - Pain [Not Recovered/Not Resolved]
  - Flushing [Not Recovered/Not Resolved]
  - Pleural effusion [Not Recovered/Not Resolved]
  - Oliguria [Not Recovered/Not Resolved]
  - Renal impairment [Not Recovered/Not Resolved]

NARRATIVE: CASE EVENT DATE: 2015
